FAERS Safety Report 9920461 (Version 1)
Quarter: 2014Q1

REPORT INFORMATION
  Report Type: Spontaneous
  Country: US (occurrence: US)
  Receive Date: 20140224
  Receipt Date: 20140224
  Transmission Date: 20141002
  Serious: No
  Sender: FDA-Public Use
  Company Number: US-NOVEN-13US008123

PATIENT
  Sex: Female

DRUGS (3)
  1. MINIVELLE [Suspect]
     Indication: HOT FLUSH
     Dosage: 0.05 MG, UNK
     Route: 062
     Dates: start: 201306
  2. MINIVELLE [Suspect]
     Indication: NIGHT SWEATS
     Dosage: 0.075 MG, UNK
     Route: 062
  3. MINIVELLE [Suspect]
     Indication: INSOMNIA

REACTIONS (1)
  - Drug ineffective [Recovered/Resolved]
